FAERS Safety Report 19374780 (Version 2)
Quarter: 2021Q4

REPORT INFORMATION
  Report Type: Spontaneous
  Country: US (occurrence: US)
  Receive Date: 20210604
  Receipt Date: 20211027
  Transmission Date: 20220303
  Serious: Yes (Hospitalization, Other)
  Sender: FDA-Public Use
  Company Number: US-SUN PHARMACEUTICAL INDUSTRIES LTD-2021R1-299031

PATIENT
  Age: 64 Year
  Sex: Male
  Weight: 68 kg

DRUGS (16)
  1. BACTRIM [Suspect]
     Active Substance: SULFAMETHOXAZOLE\TRIMETHOPRIM
     Indication: Atypical pneumonia
     Dosage: UNK
     Route: 065
     Dates: start: 20210421, end: 20210509
  2. TYGACIL [Suspect]
     Active Substance: TIGECYCLINE
     Indication: Atypical pneumonia
     Dosage: 50 MILLIGRAM, BID
     Route: 065
     Dates: end: 202104
  3. TYGACIL [Suspect]
     Active Substance: TIGECYCLINE
     Dosage: 25 MILLIGRAM, BID
     Route: 065
     Dates: start: 202104
  4. NUZYRA [Suspect]
     Active Substance: OMADACYCLINE
     Indication: Atypical pneumonia
     Dosage: 450 MILLIGRAM, QD
     Route: 048
     Dates: start: 20210425, end: 20210426
  5. NUZYRA [Suspect]
     Active Substance: OMADACYCLINE
     Dosage: 300 MILLIGRAM, QD
     Route: 048
     Dates: start: 20210427, end: 20210510
  6. ZOFRAN [Concomitant]
     Active Substance: ONDANSETRON HYDROCHLORIDE
     Indication: Product used for unknown indication
     Route: 065
  7. CLARITIN [Concomitant]
     Active Substance: LORATADINE
     Indication: Product used for unknown indication
     Dosage: 10 MILLIGRAM, DAILY
     Route: 065
  8. Albeterol Rescue Inhaler [Concomitant]
     Indication: Product used for unknown indication
     Route: 065
  9. Albeterol Aerosol treatment [Concomitant]
     Indication: Product used for unknown indication
     Dosage: UNK, BID
     Route: 065
  10. ADVAIR HFA [Concomitant]
     Active Substance: FLUTICASONE PROPIONATE\SALMETEROL XINAFOATE
     Indication: Product used for unknown indication
     Dosage: 2 PUFFS, BID
     Route: 065
  11. PROSCAR [Concomitant]
     Active Substance: FINASTERIDE
     Indication: Product used for unknown indication
     Dosage: 5 MG
     Route: 065
  12. FLONASE [Concomitant]
     Active Substance: FLUTICASONE PROPIONATE
     Indication: Product used for unknown indication
     Dosage: UNK, DAILY
     Route: 065
  13. LIPITOR [Concomitant]
     Active Substance: ATORVASTATIN CALCIUM
     Indication: Product used for unknown indication
     Dosage: 10 MG
     Route: 065
  14. NORVASC [Concomitant]
     Active Substance: AMLODIPINE BESYLATE
     Indication: Product used for unknown indication
     Dosage: 5 MG
     Route: 065
  15. KENALOG [Concomitant]
     Active Substance: TRIAMCINOLONE ACETONIDE
     Indication: Product used for unknown indication
     Dosage: 80 MILLIGRAM, ANNUALLY IN THE SPRING
     Route: 065
  16. AMIKACIN [Concomitant]
     Active Substance: AMIKACIN
     Indication: Product used for unknown indication
     Dosage: 1500 MILLIGRAM, 3 TIMES PER WEEK
     Route: 065

REACTIONS (6)
  - Sepsis [Unknown]
  - Nausea [Not Recovered/Not Resolved]
  - Vomiting [Recovered/Resolved]
  - Decreased appetite [Not Recovered/Not Resolved]
  - Incorrect product administration duration [Unknown]
  - Condition aggravated [Unknown]

NARRATIVE: CASE EVENT DATE: 20210401
